FAERS Safety Report 5660760-9 (Version None)
Quarter: 2008Q1

REPORT INFORMATION
  Report Type: 
  Country: None (occurrence: None)
  Receive Date: 20080311
  Receipt Date: 20080303
  Transmission Date: 20080703
  Serious: Yes (Hospitalization)
  Sender: FDA-Public Use
  Company Number: US-ELI_LILLY_AND_COMPANY-US200803001356

PATIENT
  Sex: Female

DRUGS (6)
  1. BYETTA [Suspect]
     Dosage: 5 UG, 2/D
     Route: 058
     Dates: start: 20080222, end: 20080227
  2. BYETTA [Suspect]
     Dosage: 10 UG, 2/D
     Route: 058
     Dates: start: 20080228, end: 20080229
  3. ROSIGLITAZONE [Concomitant]
     Dosage: UNK, DAILY (1/D)
     Route: 048
  4. GLIMEPIRIDE [Concomitant]
     Dosage: UNK, DAILY (1/D)
     Route: 048
  5. LANTUS [Concomitant]
     Dosage: UNK, UNKNOWN
     Dates: start: 20071101
  6. INSULIN [Concomitant]
     Dosage: UNK, AS NEEDED

REACTIONS (7)
  - BLOOD GLUCOSE INCREASED [None]
  - DRUG INEFFECTIVE [None]
  - HEART RATE INCREASED [None]
  - INCORRECT DOSE ADMINISTERED [None]
  - NAUSEA [None]
  - VOMITING [None]
  - WEIGHT DECREASED [None]
